FAERS Safety Report 13428594 (Version 1)
Quarter: 2017Q2

REPORT INFORMATION
  Report Type: Spontaneous
  Country: US (occurrence: US)
  Receive Date: 20170411
  Receipt Date: 20170411
  Transmission Date: 20170830
  Serious: No
  Sender: FDA-Public Use
  Company Number: US-BAYER-2017-069753

PATIENT
  Age: 80 Year
  Sex: Female
  Weight: 72 kg

DRUGS (4)
  1. LOTRIMIN ULTRA [Suspect]
     Active Substance: BUTENAFINE HYDROCHLORIDE
     Indication: RASH
     Dosage: UNK, ONCE
     Route: 061
     Dates: start: 20170410, end: 20170410
  2. BAYER ASPIRIN [Concomitant]
     Active Substance: ASPIRIN
     Dosage: UNK
     Route: 048
     Dates: start: 2001, end: 20170410
  3. LIPITOR [Concomitant]
     Active Substance: ATORVASTATIN CALCIUM
     Dosage: UNK
     Route: 048
  4. TOPROL XL [Concomitant]
     Active Substance: METOPROLOL SUCCINATE
     Dosage: UNK
     Route: 048

REACTIONS (1)
  - Drug prescribing error [Unknown]

NARRATIVE: CASE EVENT DATE: 20170410
